FAERS Safety Report 8303509-3 (Version None)
Quarter: 2012Q2

REPORT INFORMATION
  Report Type: 
  Country: None (occurrence: None)
  Receive Date: 20120418
  Receipt Date: 20110405
  Transmission Date: 20120825
  Serious: No
  Sender: FDA-Public Use
  Company Number: AEDEU201100080

PATIENT
  Age: 47 Year
  Sex: Male

DRUGS (5)
  1. BUDIAIR [Concomitant]
  2. PROLASTIN [Suspect]
     Indication: ALPHA-1 ANTI-TRYPSIN DEFICIENCY
     Dosage: 4 GM;QW;IV
     Route: 042
     Dates: start: 20110310, end: 20110324
  3. BEROTEC [Concomitant]
  4. SPIRIVA [Concomitant]
  5. FORAIR /00958002/ [Concomitant]

REACTIONS (3)
  - INFLUENZA LIKE ILLNESS [None]
  - CHILLS [None]
  - MALAISE [None]
